FAERS Safety Report 9843975 (Version 1)
Quarter: 2013Q4

REPORT INFORMATION
  Report Type: Spontaneous
  Country: US (occurrence: None)
  Receive Date: 20131223
  Receipt Date: 20131223
  Transmission Date: 20140711
  Serious: No
  Sender: FDA-Public Use
  Company Number: 1000050239

PATIENT
  Age: 53 Year
  Sex: Female

DRUGS (8)
  1. LINZESS (LINACLOTIDE) (290 MICROGRAM, CAPSULES) [Suspect]
     Indication: IRRITABLE BOWEL SYNDROME
     Dosage: 290 MCG (290 MCG, 1 IN 1 D), ORAL
     Route: 048
     Dates: start: 201308
  2. LISINOPRIL (LISINOPRIL) (LISINOPRIL) [Concomitant]
  3. GLIPIZIDE (GLIPIZIDE) (GLIPIZIDE) [Concomitant]
  4. ZOCOR (SIMVASTATIN) (SIMVASTATIN) [Concomitant]
  5. NORVASC (AMLODIPINE BESILATE) (AMLODIINE BESILATE) [Concomitant]
  6. ZANTAC (RANITIDINE HYDROCHLORIDE) (RANITIDINE HYDROCHLORIDE) [Concomitant]
  7. VITAMIN B 12 (VITAMIN B NOS) (VITAMIN B NOS) [Concomitant]
  8. VITAMIN D3 (COLECALCIFEROL) (COLECALCIFEROL) [Concomitant]

REACTIONS (2)
  - Cough [None]
  - Chest pain [None]
